FAERS Safety Report 26018810 (Version 1)
Quarter: 2025Q4

REPORT INFORMATION
  Report Type: Spontaneous
  Country: EG (occurrence: EG)
  Receive Date: 20251110
  Receipt Date: 20251110
  Transmission Date: 20260117
  Serious: Yes (Life-Threatening, Other)
  Sender: HIKMA
  Company Number: EG-HIKMA PHARMACEUTICALS-EG-H14001-25-11796

PATIENT

DRUGS (4)
  1. CARBOPLATIN [Suspect]
     Active Substance: CARBOPLATIN
     Indication: Cholangiocarcinoma
     Dosage: 446 MILLIGRAM, 3W, CYCLE 3 (DOSE 1) , WHICH REPEATED EVERY 21 DAY (DAY 1 ONLY)
     Route: 042
     Dates: start: 20250922
  2. GEMCITABINE HYDROCHLORIDE [Suspect]
     Active Substance: GEMCITABINE HYDROCHLORIDE
     Indication: Cholangiocarcinoma
     Dosage: 1500 MILLIGRAM, 3W,  CYCLE 1 DAY 8 (DOSE 2 ) , WHICH REPEATED EVERY 21DAY (ADMINISTERED 2 TIMES (CYC
     Route: 042
     Dates: start: 20250930
  3. DEXAMETHASONE [Concomitant]
     Active Substance: DEXAMETHASONE
     Indication: Chemotherapy side effect prophylaxis
     Dosage: UNK
     Route: 065
  4. PIRAFENE [Concomitant]
     Indication: Chemotherapy side effect prophylaxis
     Dosage: UNK
     Route: 065

REACTIONS (2)
  - Oxygen saturation decreased [Recovered/Resolved]
  - Dyspnoea [Recovered/Resolved]

NARRATIVE: CASE EVENT DATE: 20250930
